FAERS Safety Report 5273916-4 (Version None)
Quarter: 2007Q1

REPORT INFORMATION
  Report Type: 
  Country: None (occurrence: None)
  Receive Date: 20070323
  Receipt Date: 20070314
  Transmission Date: 20070707
  Serious: Yes (Other)
  Sender: FDA-Public Use
  Company Number: PHNR2007AU00825

PATIENT
  Sex: Female

DRUGS (1)
  1. ZOMETA [Suspect]
     Indication: BONE NEOPLASM MALIGNANT
     Dosage: UNK, UNK
     Route: 042
     Dates: start: 20051101, end: 20060501

REACTIONS (5)
  - DENTAL OPERATION [None]
  - INFECTION [None]
  - METASTASIS [None]
  - OSTEONECROSIS [None]
  - TOOTH DISORDER [None]
